FAERS Safety Report 5891653-X (Version None)
Quarter: 2008Q3

REPORT INFORMATION
  Report Type: 
  Country: None (occurrence: None)
  Receive Date: 20080922
  Receipt Date: 20080917
  Transmission Date: 20090109
  Serious: Yes (Death, Life-Threatening, Hospitalization)
  Sender: FDA-Public Use
  Company Number: DE-BRISTOL-MYERS SQUIBB COMPANY-14153522

PATIENT
  Age: 56 Year
  Sex: Male
  Weight: 68 kg

DRUGS (16)
  1. CETUXIMAB [Suspect]
     Indication: LARYNGEAL CANCER
     Route: 042
     Dates: start: 20080402, end: 20080402
  2. CISPLATIN [Suspect]
     Indication: LARYNGEAL CANCER
     Route: 042
     Dates: start: 20080402, end: 20080402
  3. DOCETAXEL [Suspect]
     Indication: LARYNGEAL CANCER
     Dosage: FREQUENCY-D1-5
     Route: 042
     Dates: start: 20080402, end: 20080402
  4. FLUOROURACIL [Suspect]
     Indication: LARYNGEAL CANCER
     Dates: start: 20080406, end: 20080406
  5. DIPYRONE TAB [Concomitant]
     Indication: PAIN
     Route: 048
     Dates: start: 20080405, end: 20080410
  6. BISOPROLOL FUMARATE AND HYDROCHLOROTHIAZIDE [Concomitant]
     Indication: BLOOD PRESSURE INCREASED
     Dosage: 1 DOSAGE FORM = 10MG + 25MG
     Route: 048
     Dates: end: 20080408
  7. PANTOPRAZOLE SODIUM [Concomitant]
     Route: 048
     Dates: start: 20080331, end: 20080410
  8. ALLOPURINOL [Concomitant]
     Route: 048
     Dates: start: 20080402, end: 20080407
  9. APREPITANT [Concomitant]
     Dosage: 80MG FROM 03APR-04APR08(1 IN 1 D),125MG FROM 02APR-02APR08
     Route: 048
     Dates: start: 20080402, end: 20080404
  10. METOCLOPRAMIDE [Concomitant]
     Route: 048
     Dates: start: 20080402, end: 20080407
  11. VITAMIN B COMPLEX CAP [Concomitant]
     Dosage: 1 DOSAGE FORM = 100MG + 100 MG
     Route: 048
     Dates: start: 20080402, end: 20080407
  12. TROPISETRON [Concomitant]
     Route: 042
     Dates: start: 20080402, end: 20080407
  13. DEXAMETHASONE [Concomitant]
     Dosage: 8MG ON 01APR08 AND 12MG FROM 02APR-03APR08(DUR-1 DAY)
     Route: 042
     Dates: start: 20080401, end: 20080403
  14. RANITIDINE [Concomitant]
     Route: 042
     Dates: start: 20080402, end: 20080402
  15. FUROSEMIDE [Concomitant]
     Dosage: 40MG ON 02APR08 AND 60 MG ON 03APR08
     Route: 042
     Dates: start: 20080402, end: 20080403
  16. CERTOPARIN SODIUM [Concomitant]
     Route: 058
     Dates: start: 20080331, end: 20080406

REACTIONS (4)
  - CLOSTRIDIUM DIFFICILE COLITIS [None]
  - GRANULOCYTOPENIA [None]
  - MUCOSAL INFLAMMATION [None]
  - SEPTIC SHOCK [None]
